FAERS Safety Report 9697024 (Version 1)
Quarter: 2013Q4

REPORT INFORMATION
  Report Type: Spontaneous
  Country: TW (occurrence: TW)
  Receive Date: 20131120
  Receipt Date: 20131120
  Transmission Date: 20140711
  Serious: Yes (Other)
  Sender: FDA-Public Use
  Company Number: 2011SP000551

PATIENT
  Age: 67 Year
  Sex: Female

DRUGS (1)
  1. ACARBOSE [Suspect]
     Indication: TYPE 2 DIABETES MELLITUS

REACTIONS (1)
  - Pneumatosis intestinalis [Recovered/Resolved]
